FAERS Safety Report 18491440 (Version 2)
Quarter: 2020Q4

REPORT INFORMATION
  Report Type: Report from Study
  Country: CA (occurrence: CA)
  Receive Date: 20201111
  Receipt Date: 20201202
  Transmission Date: 20210114
  Serious: Yes (Hospitalization)
  Sender: FDA-Public Use
  Company Number: CA-JNJFOC-20201002093

PATIENT
  Age: 15 Year
  Sex: Female
  Weight: 48.9 kg

DRUGS (5)
  1. REMICADE [Suspect]
     Active Substance: INFLIXIMAB
     Dosage: RECEIVE LOADING DOSE 3 AT 10 MG/KG (500 MG) THEN MAINTENANCE DOSE TO BE 5 MG/KG EVERY 4 WEEKS
     Route: 042
     Dates: start: 20200925
  2. AZATHIOPRINE. [Concomitant]
     Active Substance: AZATHIOPRINE
     Indication: PRODUCT USED FOR UNKNOWN INDICATION
     Dosage: TO BE STOPPED ON 01-OCT-2020
     Route: 048
     Dates: start: 20200909
  3. REMICADE [Suspect]
     Active Substance: INFLIXIMAB
     Route: 042
     Dates: end: 20201104
  4. REMICADE [Suspect]
     Active Substance: INFLIXIMAB
     Indication: COLITIS ULCERATIVE
     Dosage: RRECEIVE LOADING DOSE 3 AT 10 MG/KG (500 MG) THEN MAINTENANCE DOSE TO BE 5 MG/KG EVERY 4 WEEKS
     Route: 042
     Dates: start: 20200920
  5. PREDNISONE. [Concomitant]
     Active Substance: PREDNISONE
     Indication: INFLAMMATION
     Route: 048

REACTIONS (5)
  - Therapy non-responder [Unknown]
  - Drug level increased [Unknown]
  - Off label use [Unknown]
  - Colitis ulcerative [Recovering/Resolving]
  - Product use issue [Unknown]

NARRATIVE: CASE EVENT DATE: 2020
